FAERS Safety Report 9757541 (Version 2)
Quarter: 2014Q1

REPORT INFORMATION
  Report Type: Report from Study
  Country: AR (occurrence: AR)
  Receive Date: 20131216
  Receipt Date: 20140106
  Transmission Date: 20141002
  Serious: Yes (Other)
  Sender: FDA-Public Use
  Company Number: AR-ROCHE-1318918

PATIENT
  Sex: Female

DRUGS (2)
  1. RANIBIZUMAB [Suspect]
     Indication: THROMBOSIS
     Route: 050
     Dates: start: 201304
  2. RANIBIZUMAB [Suspect]
     Indication: MACULOPATHY

REACTIONS (4)
  - Cerebrovascular accident [Recovering/Resolving]
  - Chest pain [Unknown]
  - Agnosia [Unknown]
  - Drug ineffective [Unknown]
